FAERS Safety Report 23042460 (Version 1)
Quarter: 2023Q4

REPORT INFORMATION
  Report Type: Report from Study
  Country: US (occurrence: US)
  Receive Date: 20231008
  Receipt Date: 20231008
  Transmission Date: 20240109
  Serious: Yes (Hospitalization, Other)
  Sender: FDA-Public Use
  Company Number: US-ABBVIE-5437843

PATIENT
  Sex: Male

DRUGS (1)
  1. HUMIRA [Suspect]
     Active Substance: ADALIMUMAB
     Indication: Rheumatoid arthritis
     Route: 058
     Dates: start: 20230805

REACTIONS (2)
  - Cardiac operation [Recovering/Resolving]
  - Catheterisation cardiac [Unknown]

NARRATIVE: CASE EVENT DATE: 20230101
